FAERS Safety Report 5310790-1 (Version None)
Quarter: 2007Q2

REPORT INFORMATION
  Report Type: 
  Country: None (occurrence: None)
  Receive Date: 20070428
  Receipt Date: 20070417
  Transmission Date: 20071010
  Serious: Yes (Other)
  Sender: FDA-Public Use
  Company Number: US-PFIZER INC-2007018668

PATIENT
  Sex: Male
  Weight: 86.4 kg

DRUGS (5)
  1. LIPITOR [Suspect]
     Indication: BLOOD CHOLESTEROL INCREASED
  2. LIPITOR [Suspect]
     Indication: HYPERLIPIDAEMIA
     Dosage: DAILY DOSE:20MG
     Route: 048
  3. WELLBUTRIN [Concomitant]
  4. MAXZIDE [Concomitant]
  5. NORVASC [Concomitant]

REACTIONS (2)
  - MUSCULOSKELETAL DISORDER [None]
  - ROTATOR CUFF SYNDROME [None]
